FAERS Safety Report 23273624 (Version 3)
Quarter: 2024Q1

REPORT INFORMATION
  Report Type: Spontaneous
  Country: GB (occurrence: GB)
  Receive Date: 20231207
  Receipt Date: 20240117
  Transmission Date: 20240409
  Serious: Yes (Other)
  Sender: FDA-Public Use
  Company Number: None

PATIENT
  Age: 38 Year
  Sex: Female
  Weight: 76.599 kg

DRUGS (1)
  1. XARELTO [Suspect]
     Active Substance: RIVAROXABAN
     Indication: Intracardiac thrombus
     Dosage: UNK
     Route: 048
     Dates: start: 20230314

REACTIONS (2)
  - Heavy menstrual bleeding [Recovering/Resolving]
  - Menstrual clots [Unknown]
